FAERS Safety Report 8289239-5 (Version None)
Quarter: 2012Q2

REPORT INFORMATION
  Report Type: 
  Country: None (occurrence: None)
  Receive Date: 20120417
  Receipt Date: 20120410
  Transmission Date: 20120825
  Serious: Yes (Hospitalization, Other)
  Sender: FDA-Public Use
  Company Number: PHEH2012US007826

PATIENT
  Sex: Male
  Weight: 67.12 kg

DRUGS (13)
  1. SINGULAIR [Concomitant]
     Dosage: 100 MG, UNK
     Route: 048
  2. ROBAXIN [Concomitant]
     Dosage: 500 MG, UNK
     Route: 048
  3. GLEEVEC [Suspect]
     Dosage: 200 MG, DAILY
     Route: 048
  4. CENTRUM [Concomitant]
  5. FISH OIL [Concomitant]
     Route: 048
  6. NEURONTIN [Concomitant]
     Dosage: 100 MG, UNK
     Route: 048
  7. DIFLUCAN [Concomitant]
     Dosage: 100 MG, UNK
     Route: 048
  8. VALTREX [Concomitant]
     Dosage: 500 MG, UNK
     Route: 048
  9. PROTONIX [Concomitant]
     Dosage: 20 MG, UNK
     Route: 048
  10. MYCOPHENOLATE MOFETIL (CELLCEPT) [Concomitant]
     Dosage: 250 MG, UNK
     Route: 048
  11. CALCIUM CARBONATE [Concomitant]
     Dosage: 500 MG, UNK
     Route: 048
  12. PENICILLIN VK [Concomitant]
     Dosage: 250 MG, UNK
     Route: 048
  13. HUMULIN R [Concomitant]

REACTIONS (5)
  - DRY EYE [None]
  - WEIGHT DECREASED [None]
  - PNEUMONIA [None]
  - STAPHYLOCOCCAL INFECTION [None]
  - FATIGUE [None]
